FAERS Safety Report 5441591-1 (Version None)
Quarter: 2007Q3

REPORT INFORMATION
  Report Type: 
  Country: None (occurrence: None)
  Receive Date: 20070830
  Receipt Date: 20070830
  Transmission Date: 20080115
  Serious: Yes (Hospitalization)
  Sender: FDA-Public Use
  Company Number: None

PATIENT
  Sex: Female
  Weight: 62.7 kg

DRUGS (10)
  1. CETUXIMAB [Suspect]
     Indication: PANCREATIC CARCINOMA
     Dosage: 400MG/M2
     Dates: start: 20070816
  2. OXALIPLATIN [Suspect]
     Indication: PANCREATIC CARCINOMA
     Dosage: 100MG/M2
     Dates: start: 20070816
  3. GEMCITABINE HCL [Suspect]
     Indication: PANCREATIC CARCINOMA
     Dosage: 1GM/M2
     Dates: start: 20070817
  4. DURAGESIC-100 [Concomitant]
  5. DILAUDID [Concomitant]
  6. HUMALIN INSULIN SLIDING SCALE [Concomitant]
  7. ATIVAN [Concomitant]
  8. SYNTHROID [Concomitant]
  9. LOPRESSOR [Concomitant]
  10. NORVASC [Concomitant]

REACTIONS (6)
  - ANXIETY [None]
  - CHEST DISCOMFORT [None]
  - DEHYDRATION [None]
  - DIZZINESS [None]
  - DYSPNOEA [None]
  - PALPITATIONS [None]
